FAERS Safety Report 8401028-7 (Version None)
Quarter: 2012Q2

REPORT INFORMATION
  Report Type: 
  Country: None (occurrence: None)
  Receive Date: 20120601
  Receipt Date: 20120518
  Transmission Date: 20120825
  Serious: Yes (Death, Other)
  Sender: FDA-Public Use
  Company Number: GB-RANBAXY-2012R1-55663

PATIENT
  Age: 48 Year
  Sex: Female
  Weight: 70 kg

DRUGS (14)
  1. RANITIDINE [Suspect]
     Indication: PRODUCT USED FOR UNKNOWN INDICATION
     Dosage: UNK
     Route: 042
  2. DOCUSATE [Concomitant]
     Indication: PRODUCT USED FOR UNKNOWN INDICATION
     Route: 048
  3. DOMPERIDONE [Suspect]
     Indication: PRODUCT USED FOR UNKNOWN INDICATION
     Dosage: UNK
     Route: 048
  4. DOMPERIDONE [Suspect]
     Dosage: UNK
     Route: 048
  5. CHLORPHENIRAMINE TAB [Suspect]
     Indication: PRODUCT USED FOR UNKNOWN INDICATION
     Route: 042
  6. DEXAMETHASONE [Suspect]
     Dosage: 4 MG, BID
     Route: 048
  7. DEXAMETHASONE [Suspect]
     Dosage: UNK
  8. PACLITAXEL [Suspect]
     Dosage: 300 MG, 1/2 WEEKS
     Route: 042
     Dates: end: 20110705
  9. NEULASTA [Suspect]
     Indication: CHEMOTHERAPY
     Route: 058
  10. DEXAMETHASONE [Suspect]
     Indication: PRODUCT USED FOR UNKNOWN INDICATION
     Dosage: UNK
     Route: 042
  11. PEGFILGRASTIM [Suspect]
     Indication: CHEMOTHERAPY
     Dosage: UNK
     Route: 058
  12. BIOTENE DRY MOUTH [Concomitant]
     Indication: PRODUCT USED FOR UNKNOWN INDICATION
     Dosage: UNK
     Route: 065
  13. GRANISETRON [Suspect]
     Indication: PRODUCT USED FOR UNKNOWN INDICATION
     Dosage: 1 MG, BID
     Route: 048
  14. PACLITAXEL [Suspect]
     Indication: BREAST CANCER
     Dosage: 315 MG, 1/2 WEEKS
     Route: 042
     Dates: start: 20110524, end: 20110705

REACTIONS (5)
  - RESPIRATORY DEPTH DECREASED [None]
  - CHEST DISCOMFORT [None]
  - FATIGUE [None]
  - DYSPNOEA [None]
  - CHEST PAIN [None]
